FAERS Safety Report 8925607 (Version 1)
Quarter: 2012Q4

REPORT INFORMATION
  Report Type: 
  Country: US (occurrence: US)
  Receive Date: 20121126
  Receipt Date: 20121126
  Transmission Date: 20130627
  Serious: Yes (Hospitalization)
  Sender: FDA-Public Use
  Company Number: US-BAYER-2012-121487

PATIENT
  Age: 36 Year
  Sex: Female
  Weight: 105.22 kg

DRUGS (20)
  1. YAZ [Suspect]
  2. MACROBID [Concomitant]
     Dosage: UNK UNK, BID
     Dates: start: 20060628
  3. RISPERDAL [Concomitant]
     Dosage: 0.5 mg, daily
     Dates: start: 20060809
  4. NARDIL [Concomitant]
     Dosage: 4 mg daily;14 mg qd
     Dates: start: 20060809
  5. NARDIL [Concomitant]
     Dosage: UNK
     Dates: start: 20060811
  6. PROTONIX [Concomitant]
  7. ORTHO-NOVUM 7/7/7 [Concomitant]
     Dosage: UNK
     Dates: start: 20060628
  8. ROLAIDS [CALCIUM CARBONATE,MAGNESIUM HYDROXIDE] [Concomitant]
  9. CIPROFLOXACIN [Concomitant]
     Indication: UTI
  10. ARIXTRA [Concomitant]
  11. OXYCODONE [Concomitant]
  12. HALDOL [Concomitant]
     Dosage: 2.5 mg, UNK
  13. NEXIUM [Concomitant]
  14. NIFEREX [Concomitant]
  15. SENOKOT S [Concomitant]
  16. MULTIVITAMIN [Concomitant]
  17. SIMETHICONE [Concomitant]
  18. PHENELZINE [Concomitant]
     Dosage: 45 mg in the morning, 30 mg at night
  19. NORCO [Concomitant]
  20. PACKED RED BLOOD CELLS [Concomitant]
     Indication: ANEMIA
     Dosage: 2 units

REACTIONS (4)
  - Mesenteric vein thrombosis [None]
  - Splenic vein thrombosis [None]
  - Portal vein thrombosis [None]
  - Cholecystitis [None]
